FAERS Safety Report 5397251-9 (Version None)
Quarter: 2007Q3

REPORT INFORMATION
  Report Type: 
  Country: None (occurrence: None)
  Receive Date: 20070725
  Receipt Date: 20070716
  Transmission Date: 20080115
  Serious: Yes (Other)
  Sender: FDA-Public Use
  Company Number: US-PFIZER INC-2007059226

PATIENT
  Age: 64 Year
  Sex: Male

DRUGS (2)
  1. VIAGRA [Suspect]
     Dosage: DAILY DOSE:100MG
  2. MULTIVITAMIN [Concomitant]

REACTIONS (3)
  - BLINDNESS [None]
  - OVERDOSE [None]
  - TRANSIENT ISCHAEMIC ATTACK [None]
